FAERS Safety Report 9949277 (Version 1)
Quarter: 2014Q1

REPORT INFORMATION
  Report Type: Spontaneous
  Country: GB (occurrence: GB)
  Receive Date: 20140304
  Receipt Date: 20140304
  Transmission Date: 20141002
  Serious: Yes (Disabling)
  Sender: FDA-Public Use
  Company Number: GB-ACCORD-022107

PATIENT
  Age: 67 Year
  Sex: Male
  Weight: 93.9 kg

DRUGS (3)
  1. SIMVASTATIN [Suspect]
     Indication: PRODUCT USED FOR UNKNOWN INDICATION
     Dates: start: 20131113
  2. LEVOTHYROXINE [Concomitant]
     Dates: start: 20131219
  3. ATORVASTATIN [Concomitant]
     Dates: start: 20140211

REACTIONS (1)
  - Abdominal distension [Recovered/Resolved]
